FAERS Safety Report 5549567-0 (Version None)
Quarter: 2007Q4

REPORT INFORMATION
  Report Type: 
  Country: None (occurrence: None)
  Receive Date: 20071128
  Receipt Date: 20070724
  Transmission Date: 20080405
  Serious: Yes (Other)
  Sender: FDA-Public Use
  Company Number: 2007062642

PATIENT
  Sex: Female

DRUGS (2)
  1. LIPITOR [Suspect]
     Indication: BLOOD CHOLESTEROL INCREASED
     Dosage: 15 MONTHS AGO
     Dates: end: 20070701
  2. AVAPRO [Suspect]
     Indication: HYPERTENSION

REACTIONS (5)
  - DRUG INTERACTION [None]
  - HYPERTENSION [None]
  - MUSCULAR WEAKNESS [None]
  - PAIN IN EXTREMITY [None]
  - SENSATION OF HEAVINESS [None]
